FAERS Safety Report 9862295 (Version 4)
Quarter: 2014Q1

REPORT INFORMATION
  Report Type: Spontaneous
  Country: AU (occurrence: AU)
  Receive Date: 20140203
  Receipt Date: 20140217
  Transmission Date: 20141002
  Serious: Yes (Other)
  Sender: FDA-Public Use
  Company Number: AU-UCBSA-103801

PATIENT
  Age: 89 Year
  Sex: Female

DRUGS (3)
  1. CIMZIA [Suspect]
     Indication: RHEUMATOID ARTHRITIS
     Route: 058
     Dates: start: 20131217, end: 20140128
  2. CIMZIA [Suspect]
     Indication: RHEUMATOID ARTHRITIS
     Route: 058
     Dates: start: 20131106, end: 201311
  3. CIMZIA [Suspect]
     Indication: RHEUMATOID ARTHRITIS
     Route: 058
     Dates: start: 20131022, end: 20131104

REACTIONS (10)
  - Herpes zoster [Recovering/Resolving]
  - Rash generalised [Recovering/Resolving]
  - Dizziness [Recovered/Resolved]
  - Somnolence [Not Recovered/Not Resolved]
  - Fall [Unknown]
  - Wound [Recovered/Resolved]
  - Paraesthesia [Not Recovered/Not Resolved]
  - Local swelling [Recovered/Resolved]
  - Fatigue [Recovering/Resolving]
  - Medication error [Recovered/Resolved]
